FAERS Safety Report 10429763 (Version 1)
Quarter: 2014Q3

REPORT INFORMATION
  Report Type: Spontaneous
  Country: US (occurrence: US)
  Receive Date: 20140904
  Receipt Date: 20140904
  Transmission Date: 20150326
  Serious: No
  Sender: FDA-Public Use
  Company Number: US-ELI_LILLY_AND_COMPANY-US201409000664

PATIENT
  Sex: Female

DRUGS (3)
  1. OLANZAPINE. [Suspect]
     Active Substance: OLANZAPINE
     Indication: DEPERSONALISATION
     Dosage: 2.5 MG, QD
     Route: 065
  2. ZYPREXA ZYDIS [Suspect]
     Active Substance: OLANZAPINE
     Indication: DEPERSONALISATION
     Dosage: 10 MG, QD
     Route: 065
  3. ZYPREXA ZYDIS [Suspect]
     Active Substance: OLANZAPINE
     Dosage: 5 MG, QD
     Route: 065

REACTIONS (4)
  - Feeling abnormal [Unknown]
  - Hypersensitivity [Unknown]
  - Off label use [Unknown]
  - Overweight [Unknown]
